FAERS Safety Report 7681574-4 (Version None)
Quarter: 2011Q3

REPORT INFORMATION
  Report Type: 
  Country: None (occurrence: None)
  Receive Date: 20110812
  Receipt Date: 20110803
  Transmission Date: 20111222
  Serious: Yes (Other)
  Sender: FDA-Public Use
  Company Number: PHHY2011JP71662

PATIENT

DRUGS (2)
  1. LAMISIL [Suspect]
     Route: 048
     Dates: start: 20110601
  2. EQUA [Suspect]
     Dosage: UNK
     Route: 048
     Dates: start: 20110601

REACTIONS (3)
  - DYSARTHRIA [None]
  - READING DISORDER [None]
  - CEREBRAL INFARCTION [None]
